FAERS Safety Report 24444534 (Version 2)
Quarter: 2024Q4

REPORT INFORMATION
  Report Type: Report from Study
  Country: US (occurrence: US)
  Receive Date: 20241016
  Receipt Date: 20241017
  Transmission Date: 20250115
  Serious: No
  Sender: ROCHE
  Company Number: US-ROCHE-2788162

PATIENT
  Age: 69 Year
  Sex: Male

DRUGS (7)
  1. RITUXAN [Suspect]
     Active Substance: RITUXIMAB
     Indication: Immunoglobulin G4 related disease
     Dosage: NO
     Route: 065
     Dates: start: 2014, end: 2015
  2. RITUXAN [Suspect]
     Active Substance: RITUXIMAB
     Indication: Immunosuppression
  3. AMLODIPINE [Concomitant]
     Active Substance: AMLODIPINE BESYLATE
  4. LOSARTAN [Concomitant]
     Active Substance: LOSARTAN
  5. FLOVENT [Concomitant]
     Active Substance: FLUTICASONE PROPIONATE
  6. SINGULAIR [Concomitant]
     Active Substance: MONTELUKAST SODIUM
  7. LEVALBUTEROL [Concomitant]
     Active Substance: LEVALBUTEROL

REACTIONS (2)
  - Off label use [Unknown]
  - No adverse event [Unknown]
